FAERS Safety Report 5413218-6 (Version None)
Quarter: 2007Q3

REPORT INFORMATION
  Report Type: 
  Country: None (occurrence: None)
  Receive Date: 20070814
  Receipt Date: 20070806
  Transmission Date: 20080115
  Serious: Yes (Disabling)
  Sender: FDA-Public Use
  Company Number: DEWYE864730JUN04

PATIENT
  Sex: Male
  Weight: 69 kg

DRUGS (12)
  1. VENLAFAXINE HCL [Suspect]
     Indication: DEPRESSION
     Route: 048
  2. VENLAFAXINE HCL [Suspect]
     Dosage: UNKNOWN
     Route: 048
     Dates: end: 20040330
  3. VENLAFAXINE HCL [Suspect]
     Route: 048
     Dates: start: 20040331, end: 20040402
  4. RYTHMOL [Concomitant]
     Indication: TACHYARRHYTHMIA
     Route: 048
  5. ACETYLSALICYLIC ACID SRT [Concomitant]
  6. ATORVASTATIN CALCIUM [Concomitant]
  7. HYDROCHLOROTHIAZIDE [Concomitant]
  8. VALSARTAN [Concomitant]
  9. ZOPICLONE [Concomitant]
  10. TROSPIUM CHLORIDE [Concomitant]
  11. CLOPIDOGREL [Concomitant]
     Route: 048
  12. BENSERAZIDE HYDROCHLORIDE/LEVODOPA [Suspect]
     Dosage: UNKNOWN

REACTIONS (3)
  - CONDITION AGGRAVATED [None]
  - DEPRESSION [None]
  - OESOPHAGEAL ACHALASIA [None]
